FAERS Safety Report 15644749 (Version 1)
Quarter: 2018Q4

REPORT INFORMATION
  Report Type: Report from Study
  Country: PL (occurrence: PL)
  Receive Date: 20181121
  Receipt Date: 20181121
  Transmission Date: 20190205
  Serious: Yes (Death, Other)
  Sender: FDA-Public Use
  Company Number: PL-CHIESI USA, INC.-PL-2018CHI000503

PATIENT
  Age: 1 Day
  Sex: Female
  Weight: .5 kg

DRUGS (6)
  1. CUROSURF [Suspect]
     Active Substance: PORACTANT ALFA
     Dosage: UNK
     Route: 007
     Dates: start: 20180824, end: 20180824
  2. PEYONA [Concomitant]
     Indication: LOW BIRTH WEIGHT BABY
     Dosage: 10 MG, QD
     Dates: start: 20180823, end: 20180826
  3. AMPICILLIN [Concomitant]
     Active Substance: AMPICILLIN
     Indication: PREMATURE BABY
     Dosage: 50 MG, QD
     Dates: start: 20180823, end: 20180826
  4. CUROSURF [Suspect]
     Active Substance: PORACTANT ALFA
     Indication: NEONATAL RESPIRATORY DISTRESS SYNDROME
     Dosage: 1.5 ML, UNK
     Route: 039
     Dates: start: 20180824, end: 20180824
  5. GENTAMYCIN                         /00047101/ [Concomitant]
     Active Substance: GENTAMICIN
     Indication: PREMATURE BABY
     Dosage: 2.5 MG, QD
     Dates: start: 20180823, end: 20180826
  6. CUROSURF [Suspect]
     Active Substance: PORACTANT ALFA
     Dosage: UNK
     Route: 039
     Dates: start: 20180824, end: 20180824

REACTIONS (3)
  - Neonatal hypoxia [Recovered/Resolved]
  - Death neonatal [Fatal]
  - Inappropriate schedule of product administration [Recovered/Resolved]

NARRATIVE: CASE EVENT DATE: 20180824
